FAERS Safety Report 9892246 (Version 1)
Quarter: 2014Q1

REPORT INFORMATION
  Report Type: Spontaneous
  Country: IN (occurrence: IN)
  Receive Date: 20140212
  Receipt Date: 20140212
  Transmission Date: 20141002
  Serious: Yes (Other)
  Sender: FDA-Public Use
  Company Number: PHHY2014IN016602

PATIENT
  Sex: 0

DRUGS (1)
  1. PREDNISOLONE [Suspect]
     Dosage: MATERNAL DOSE 70 MG, PER DAY
     Route: 064

REACTIONS (2)
  - Thrombocytopenia neonatal [Unknown]
  - Foetal exposure during pregnancy [Unknown]
